FAERS Safety Report 6340221-4 (Version None)
Quarter: 2009Q3

REPORT INFORMATION
  Report Type: 
  Country: None (occurrence: None)
  Receive Date: 20090903
  Receipt Date: 20090824
  Transmission Date: 20100115
  Serious: Yes (Death, Hospitalization, Other)
  Sender: FDA-Public Use
  Company Number: US-BAXTER-2009BH010292

PATIENT
  Age: 54 Year
  Sex: Male

DRUGS (50)
  1. HEPARIN SODIUM INJECTION [Suspect]
     Indication: ARTERIOGRAM CORONARY
     Route: 042
     Dates: start: 20070912, end: 20070912
  2. HEPARIN SODIUM INJECTION [Suspect]
     Indication: CORONARY ANGIOPLASTY
     Route: 042
     Dates: start: 20070912, end: 20070912
  3. HEPARIN SODIUM INJECTION [Suspect]
     Indication: STENT PLACEMENT
     Route: 042
     Dates: start: 20070912, end: 20070912
  4. HEPARIN SODIUM INJECTION [Suspect]
     Route: 042
     Dates: start: 20070912, end: 20070912
  5. HEPARIN SODIUM INJECTION [Suspect]
     Route: 042
     Dates: start: 20070912, end: 20070912
  6. HEPARIN SODIUM INJECTION [Suspect]
     Route: 042
     Dates: start: 20070912, end: 20070912
  7. HEPARIN SODIUM INJECTION [Suspect]
     Route: 042
     Dates: start: 20070913
  8. HEPARIN SODIUM INJECTION [Suspect]
     Route: 042
     Dates: start: 20070913
  9. HEPARIN SODIUM INJECTION [Suspect]
     Route: 042
     Dates: start: 20070913
  10. HEPARIN SODIUM INJECTION [Suspect]
  11. HEPARIN SODIUM INJECTION [Suspect]
  12. HEPARIN SODIUM INJECTION [Suspect]
  13. HEPARIN SODIUM INJECTION [Suspect]
     Route: 041
     Dates: start: 20070915
  14. HEPARIN SODIUM INJECTION [Suspect]
     Route: 041
     Dates: start: 20070915
  15. HEPARIN SODIUM INJECTION [Suspect]
     Route: 041
     Dates: start: 20070915
  16. HEPARIN SODIUM 1,000 UNITS AND SODIUM CHLORIDE 0.9% [Suspect]
     Indication: PROPHYLAXIS
     Route: 041
     Dates: start: 20070901, end: 20070901
  17. HEPARIN SODIUM 1,000 UNITS AND SODIUM CHLORIDE 0.9% [Suspect]
     Indication: PERITONEAL DIALYSIS
     Route: 041
     Dates: start: 20070901, end: 20070901
  18. HEPARIN SODIUM INJECTION [Suspect]
     Indication: PROPHYLAXIS
     Route: 041
     Dates: start: 20070912
  19. HEPARIN SODIUM INJECTION [Suspect]
     Indication: PERITONEAL DIALYSIS
     Route: 041
     Dates: start: 20070912
  20. HEPARIN SODIUM INJECTION [Suspect]
     Route: 041
     Dates: start: 20070912
  21. HEPARIN SODIUM INJECTION [Suspect]
     Route: 041
     Dates: start: 20070912
  22. HEPARIN SODIUM INJECTION [Suspect]
     Route: 013
     Dates: start: 20070913, end: 20070917
  23. HEPARIN SODIUM INJECTION [Suspect]
     Route: 013
     Dates: start: 20070913, end: 20070917
  24. HEPARIN SODIUM INJECTION [Suspect]
     Route: 013
     Dates: start: 20070913, end: 20070917
  25. HEPARIN SODIUM INJECTION [Suspect]
     Route: 013
     Dates: start: 20070913, end: 20070917
  26. SODIUM CHLORIDE 0.9% IN PLASTIC CONTAINER [Concomitant]
     Indication: ARTERIOGRAM CORONARY
     Route: 041
     Dates: start: 20070912, end: 20070913
  27. LISINOPRIL [Concomitant]
     Indication: DRUG USE FOR UNKNOWN INDICATION
     Route: 065
  28. TOPROL-XL [Concomitant]
     Indication: DRUG USE FOR UNKNOWN INDICATION
     Route: 065
  29. ASPIRIN [Concomitant]
     Indication: DRUG USE FOR UNKNOWN INDICATION
     Route: 065
  30. ZINC [Concomitant]
     Indication: DRUG USE FOR UNKNOWN INDICATION
     Route: 065
  31. GARLIC [Concomitant]
     Indication: DRUG USE FOR UNKNOWN INDICATION
     Route: 065
  32. VITAMIN B-12 [Concomitant]
     Indication: DRUG USE FOR UNKNOWN INDICATION
     Route: 065
  33. ASCORBIC ACID [Concomitant]
     Indication: DRUG USE FOR UNKNOWN INDICATION
     Route: 065
  34. CALCIUM [Concomitant]
     Indication: DRUG USE FOR UNKNOWN INDICATION
     Route: 065
  35. MULTI-VITAMINS [Concomitant]
     Indication: DRUG USE FOR UNKNOWN INDICATION
     Route: 065
  36. IBUPROFEN [Concomitant]
     Indication: DRUG USE FOR UNKNOWN INDICATION
     Route: 065
  37. ACYCLOVIR [Concomitant]
     Indication: DRUG USE FOR UNKNOWN INDICATION
     Route: 065
  38. DEXAMETHASONE [Concomitant]
     Indication: DRUG USE FOR UNKNOWN INDICATION
     Route: 065
  39. VALIUM [Concomitant]
     Indication: DRUG USE FOR UNKNOWN INDICATION
     Route: 065
  40. DIPHENHYDRAMINE HCL [Concomitant]
     Indication: DRUG USE FOR UNKNOWN INDICATION
     Route: 065
  41. ANGIOMAX [Concomitant]
     Indication: DRUG USE FOR UNKNOWN INDICATION
     Route: 065
  42. VERSED [Concomitant]
     Indication: DRUG USE FOR UNKNOWN INDICATION
     Route: 065
  43. FENTANYL [Concomitant]
     Indication: DRUG USE FOR UNKNOWN INDICATION
     Route: 065
  44. ZOFRAN [Concomitant]
     Indication: DRUG USE FOR UNKNOWN INDICATION
     Route: 065
  45. SOLU-MEDROL [Concomitant]
     Indication: DRUG USE FOR UNKNOWN INDICATION
     Route: 065
  46. PANTOPRAZOLE SODIUM [Concomitant]
     Indication: DRUG USE FOR UNKNOWN INDICATION
     Route: 065
  47. PLAVIX [Concomitant]
     Indication: DRUG USE FOR UNKNOWN INDICATION
     Route: 065
  48. PLAVIX [Concomitant]
     Route: 065
  49. ASPIRIN [Concomitant]
     Indication: DRUG USE FOR UNKNOWN INDICATION
     Route: 065
  50. METOPROLOL [Concomitant]
     Indication: DRUG USE FOR UNKNOWN INDICATION
     Route: 065

REACTIONS (17)
  - ANAPHYLACTIC REACTION [None]
  - ANAPHYLACTOID REACTION [None]
  - CHEST DISCOMFORT [None]
  - DYSPNOEA [None]
  - FLUSHING [None]
  - HYPERSENSITIVITY [None]
  - HYPOAESTHESIA [None]
  - HYPOAESTHESIA ORAL [None]
  - HYPOTENSION [None]
  - HYPOXIA [None]
  - LIP SWELLING [None]
  - MULTI-ORGAN FAILURE [None]
  - PARAESTHESIA [None]
  - PARAESTHESIA ORAL [None]
  - RASH [None]
  - RENAL FAILURE ACUTE [None]
  - RESPIRATORY DISTRESS [None]
